FAERS Safety Report 16986329 (Version 5)
Quarter: 2019Q4

REPORT INFORMATION
  Report Type: Report from Study
  Country: US (occurrence: US)
  Receive Date: 20191101
  Receipt Date: 20191121
  Transmission Date: 20200122
  Serious: Yes (Death, Life-Threatening, Hospitalization)
  Sender: FDA-Public Use
  Company Number: US-CELGENEUS-USA-20191011666

PATIENT
  Age: 76 Year
  Sex: Male
  Weight: 122 kg

DRUGS (6)
  1. ABRAXANE [Suspect]
     Active Substance: PACLITAXEL
     Dosage: 184 MILLIGRAM
     Route: 041
     Dates: start: 20191022, end: 20191022
  2. GEMCITABINE. [Suspect]
     Active Substance: GEMCITABINE
     Dosage: 1472 MILLIGRAM
     Route: 065
     Dates: start: 20191022, end: 20191022
  3. ABRAXANE [Suspect]
     Active Substance: PACLITAXEL
     Indication: ADENOCARCINOMA
     Dosage: 184 MILLIGRAM
     Route: 041
     Dates: start: 20190213
  4. GEMCITABINE. [Suspect]
     Active Substance: GEMCITABINE
     Indication: ADENOCARCINOMA
     Dosage: 1472 MILLIGRAM
     Route: 065
     Dates: start: 20190213
  5. CISPLATIN. [Suspect]
     Active Substance: CISPLATIN
     Dosage: 49 MILLIGRAM
     Route: 065
     Dates: start: 20191022, end: 20191022
  6. CISPLATIN. [Suspect]
     Active Substance: CISPLATIN
     Indication: ADENOCARCINOMA
     Dosage: 49 MILLIGRAM
     Route: 065
     Dates: start: 20190213

REACTIONS (4)
  - Sepsis [Recovered/Resolved]
  - Multiple organ dysfunction syndrome [Recovered/Resolved]
  - Respiratory failure [Fatal]
  - Myocardial infarction [Recovered/Resolved]

NARRATIVE: CASE EVENT DATE: 20191028
